FAERS Safety Report 6221980-8 (Version None)
Quarter: 2009Q2

REPORT INFORMATION
  Report Type: 
  Country: None (occurrence: None)
  Receive Date: 20090611
  Receipt Date: 20090601
  Transmission Date: 20091009
  Serious: Yes (Life-Threatening, Hospitalization)
  Sender: FDA-Public Use
  Company Number: CZ-SP-2009-02489

PATIENT
  Age: 80 Year
  Sex: Male

DRUGS (2)
  1. IMMUCYST [Suspect]
     Indication: BLADDER CANCER RECURRENT
     Route: 043
     Dates: start: 20080521, end: 20080905
  2. ZANOCIN [Concomitant]
     Route: 048

REACTIONS (3)
  - PYREXIA [None]
  - STRANGURY [None]
  - TUBERCULOSIS [None]
